FAERS Safety Report 8094092-9 (Version None)
Quarter: 2012Q1

REPORT INFORMATION
  Report Type: 
  Country: None (occurrence: None)
  Receive Date: 20120131
  Receipt Date: 20120124
  Transmission Date: 20120608
  Serious: Yes (Other)
  Sender: FDA-Public Use
  Company Number: US-BRISTOL-MYERS SQUIBB COMPANY-16365637

PATIENT
  Age: 40 Year

DRUGS (1)
  1. ABILIFY [Suspect]
     Dosage: REDUCED TO 5MG FOR10DAYS AND THEN REDUCED TO 2MG 4DAYS
     Dates: start: 20120101

REACTIONS (2)
  - PANIC ATTACK [None]
  - HEADACHE [None]
